FAERS Safety Report 6247972-0 (Version None)
Quarter: 2009Q2

REPORT INFORMATION
  Report Type: 
  Country: None (occurrence: None)
  Receive Date: 20090626
  Receipt Date: 20090618
  Transmission Date: 20091009
  Serious: Yes (Life-Threatening, Other)
  Sender: FDA-Public Use
  Company Number: US-BAYER-200924138NA

PATIENT
  Age: 39 Year
  Sex: Female
  Weight: 145 kg

DRUGS (1)
  1. MAGNEVIST [Suspect]
     Indication: BACK PAIN
     Dosage: TOTAL DAILY DOSE: 20 ML  UNIT DOSE: 20 ML
     Route: 042
     Dates: start: 20090603, end: 20090603

REACTIONS (4)
  - CHEST PAIN [None]
  - DYSPNOEA [None]
  - GRAND MAL CONVULSION [None]
  - NAUSEA [None]
